FAERS Safety Report 12694821 (Version 2)
Quarter: 2016Q3

REPORT INFORMATION
  Report Type: Report from Study
  Country: US (occurrence: US)
  Receive Date: 20160829
  Receipt Date: 20160908
  Transmission Date: 20161109
  Serious: Yes (Hospitalization, Other)
  Sender: FDA-Public Use
  Company Number: US-JNJFOC-20160719659

PATIENT
  Sex: Male

DRUGS (14)
  1. CALCIUM [Concomitant]
     Active Substance: CALCIUM
  2. DOXAZOSIN MESYLATE. [Concomitant]
     Active Substance: DOXAZOSIN MESYLATE
  3. IMBRUVICA [Suspect]
     Active Substance: IBRUTINIB
     Indication: CHRONIC LYMPHOCYTIC LEUKAEMIA
     Route: 048
     Dates: start: 20160711
  4. DOXAZOSIN [Concomitant]
     Active Substance: DOXAZOSIN\DOXAZOSIN MESYLATE
  5. GEMFIBROZIL. [Concomitant]
     Active Substance: GEMFIBROZIL
  6. OSTEO BI-FLEX [Concomitant]
     Active Substance: CHONDROITIN SULFATE A\GLUCOSAMINE
  7. IMBRUVICA [Suspect]
     Active Substance: IBRUTINIB
     Indication: CHRONIC LYMPHOCYTIC LEUKAEMIA
     Route: 048
     Dates: start: 20160812
  8. AMLODIPINE [Concomitant]
     Active Substance: AMLODIPINE BESYLATE
  9. MAGNESIUM [Concomitant]
     Active Substance: MAGNESIUM
  10. ATENOLOL. [Concomitant]
     Active Substance: ATENOLOL
  11. AMLODIPINE BESYLATE. [Concomitant]
     Active Substance: AMLODIPINE BESYLATE
  12. ALLOPURINOL. [Suspect]
     Active Substance: ALLOPURINOL
     Indication: BLOOD URIC ACID INCREASED
     Route: 065
  13. CYANOCOBALAMIN. [Concomitant]
     Active Substance: CYANOCOBALAMIN
  14. IRON [Concomitant]
     Active Substance: IRON

REACTIONS (10)
  - Pleural effusion [Recovered/Resolved]
  - Arthralgia [Unknown]
  - White blood cell count increased [Unknown]
  - Diarrhoea [Unknown]
  - Blood potassium increased [Recovered/Resolved]
  - Platelet count increased [Unknown]
  - Contusion [Unknown]
  - Haemorrhage [Unknown]
  - Blood uric acid increased [Recovered/Resolved]
  - Myalgia [Recovered/Resolved]

NARRATIVE: CASE EVENT DATE: 2016
